FAERS Safety Report 15111573 (Version 1)
Quarter: 2018Q3

REPORT INFORMATION
  Report Type: Spontaneous
  Country: IN (occurrence: IN)
  Receive Date: 20180705
  Receipt Date: 20180705
  Transmission Date: 20181010
  Serious: Yes (Disabling, Other)
  Sender: FDA-Public Use
  Company Number: IN-FRESENIUS KABI-FK201807519

PATIENT
  Age: 62 Year
  Sex: Male

DRUGS (6)
  1. HYALURONIDASE [Suspect]
     Active Substance: HYALURONIDASE
     Indication: ANAESTHESIA
     Route: 056
  2. BUPIVACAINE (MANUFACTURER UNKNOWN) [Suspect]
     Active Substance: BUPIVACAINE
     Indication: AKINESIA
  3. HYALURONIDASE [Suspect]
     Active Substance: HYALURONIDASE
     Indication: AKINESIA
  4. LIDOCAINE 2% (MANUFACTURER UNKNOWN) [Suspect]
     Active Substance: LIDOCAINE
     Indication: ANAESTHESIA
     Route: 056
  5. BUPIVACAINE (MANUFACTURER UNKNOWN) [Suspect]
     Active Substance: BUPIVACAINE
     Indication: ANAESTHESIA
     Dosage: 0,5 PERCENT BUPIVACAINE
     Route: 056
  6. LIDOCAINE 2% (MANUFACTURER UNKNOWN) [Suspect]
     Active Substance: LIDOCAINE
     Indication: AKINESIA

REACTIONS (3)
  - Blindness [Recovered/Resolved with Sequelae]
  - Retinal vascular occlusion [Recovered/Resolved]
  - Conjunctival haemorrhage [Recovered/Resolved]
